FAERS Safety Report 5510251-0 (Version None)
Quarter: 2007Q4

REPORT INFORMATION
  Report Type: 
  Country: None (occurrence: None)
  Receive Date: 20071106
  Receipt Date: 20071019
  Transmission Date: 20080405
  Serious: Yes (Death)
  Sender: FDA-Public Use
  Company Number: 002#8#2007-00273

PATIENT

DRUGS (2)
  1. BACLOFEN [Suspect]
  2. DANTROLENE SODIUM [Suspect]

REACTIONS (2)
  - DISEASE PROGRESSION [None]
  - THERAPY CESSATION [None]
